FAERS Safety Report 9025596 (Version 1)
Quarter: 2013Q1

REPORT INFORMATION
  Report Type: Spontaneous
  Country: US (occurrence: US)
  Receive Date: 20130123
  Receipt Date: 20130123
  Transmission Date: 20140127
  Serious: Yes (Hospitalization)
  Sender: FDA-Public Use
  Company Number: US-MICRO LABS LIMITED-ML2013-US-00001

PATIENT
  Age: 73 Year
  Sex: Male

DRUGS (9)
  1. SIMVASTATIN [Suspect]
     Indication: PRODUCT USED FOR UNKNOWN INDICATION
     Dosage: 80 MILLIGRAM
     Route: 065
  2. AZITHROMYCIN [Interacting]
     Indication: BRONCHITIS
     Route: 048
  3. AZITHROMYCIN [Interacting]
     Route: 048
  4. NO DRUG NAME [Concomitant]
     Dosage: 100 MG DAILY
     Route: 065
  5. NO DRUG NAME [Concomitant]
     Dosage: 5 MG DAILY
     Route: 065
  6. NO DRUG NAME [Concomitant]
     Route: 065
  7. NO DRUG NAME [Concomitant]
     Route: 065
  8. NO DRUG NAME [Concomitant]
     Route: 065
  9. NO DRUG NAME [Concomitant]
     Route: 065

REACTIONS (3)
  - Drug interaction [Recovered/Resolved]
  - Rhabdomyolysis [Recovered/Resolved]
  - Renal failure acute [Recovered/Resolved]
